FAERS Safety Report 6816579-6 (Version None)
Quarter: 2010Q3

REPORT INFORMATION
  Report Type: 
  Country: None (occurrence: None)
  Receive Date: 20100706
  Receipt Date: 20100624
  Transmission Date: 20110219
  Serious: Yes (Hospitalization)
  Sender: FDA-Public Use
  Company Number: BE-WYE-H15924410

PATIENT
  Sex: Male

DRUGS (8)
  1. TEMSIROLIMUS [Suspect]
     Indication: RENAL CELL CARCINOMA
     Route: 042
     Dates: start: 20100507
  2. EMCOR [Concomitant]
     Indication: HYPERTENSION
     Dosage: UNKNOWN
  3. FLOXACILLIN SODIUM [Concomitant]
     Dosage: UNKNOWN
     Dates: start: 20100602
  4. ZOCOR [Concomitant]
     Indication: HYPERCHOLESTEROLAEMIA
     Dosage: UNKNOWN
  5. LIPITOR [Concomitant]
     Indication: HYPERCHOLESTEROLAEMIA
     Dosage: UNKNOWN
  6. DAFALGAN [Concomitant]
     Indication: PAIN
     Dosage: UNKNOWN
     Dates: start: 20100511
  7. BEVACIZUMAB [Suspect]
     Indication: RENAL CELL CARCINOMA
     Route: 042
     Dates: start: 20100507
  8. ASAFLOW [Concomitant]
     Indication: CARDIOVASCULAR EVENT PROPHYLAXIS
     Dosage: UNKNOWN
     Dates: start: 20040216

REACTIONS (1)
  - DEHYDRATION [None]
